FAERS Safety Report 12553017 (Version 3)
Quarter: 2016Q3

REPORT INFORMATION
  Report Type: Report from Study
  Country: US (occurrence: US)
  Receive Date: 20160713
  Receipt Date: 20160809
  Transmission Date: 20161109
  Serious: Yes (Death, Life-Threatening, Hospitalization, Other)
  Sender: FDA-Public Use
  Company Number: US-ACTELION-A-US2016-131628

PATIENT
  Age: 87 Year
  Sex: Female

DRUGS (1)
  1. OPSUMIT [Suspect]
     Active Substance: MACITENTAN
     Indication: PULMONARY ARTERIAL HYPERTENSION
     Dosage: 10 MG, QD
     Route: 048
     Dates: start: 20160129

REACTIONS (21)
  - Myocardial infarction [Fatal]
  - Nausea [Fatal]
  - Diarrhoea [Unknown]
  - Anaemia [Not Recovered/Not Resolved]
  - Venous pressure jugular [Unknown]
  - Acute myocardial infarction [Not Recovered/Not Resolved]
  - Dyspnoea [Not Recovered/Not Resolved]
  - Condition aggravated [Not Recovered/Not Resolved]
  - Pneumonia [Recovered/Resolved]
  - Melaena [Unknown]
  - Myocardial ischaemia [Not Recovered/Not Resolved]
  - Pulmonary vascular disorder [Unknown]
  - Wheezing [Unknown]
  - Crepitations [Unknown]
  - Atrial fibrillation [Unknown]
  - Acute kidney injury [Unknown]
  - Respiratory distress [Fatal]
  - Cardiac failure congestive [Not Recovered/Not Resolved]
  - Diverticulum [Unknown]
  - Troponin increased [Fatal]
  - Oedema [Not Recovered/Not Resolved]

NARRATIVE: CASE EVENT DATE: 20160207
